FAERS Safety Report 24270911 (Version 1)
Quarter: 2024Q3

REPORT INFORMATION
  Report Type: Report from Study
  Country: CA (occurrence: CA)
  Receive Date: 20240831
  Receipt Date: 20240831
  Transmission Date: 20241017
  Serious: Yes (Other)
  Sender: ABBVIE
  Company Number: CA-ABBVIE-5900669

PATIENT
  Age: 46 Year
  Sex: Female

DRUGS (2)
  1. RINVOQ [Suspect]
     Active Substance: UPADACITINIB
     Indication: Psoriatic arthropathy
     Dosage: RINVOQ WAS STOPPED FOR ABOUT 2 MONTHS?FORM STRENGTH: 15 MILLIGRAM
     Route: 048
     Dates: start: 20230610
  2. RINVOQ [Suspect]
     Active Substance: UPADACITINIB
     Indication: Psoriatic arthropathy
     Dosage: FORM STRENGTH: 15 MILLIGRAM
     Route: 048
     Dates: start: 202406

REACTIONS (4)
  - Hysterectomy [Unknown]
  - Oophorectomy [Unknown]
  - Post procedural infection [Unknown]
  - Therapeutic product effect decreased [Unknown]
